FAERS Safety Report 5840641-8 (Version None)
Quarter: 2008Q3

REPORT INFORMATION
  Report Type: 
  Country: None (occurrence: None)
  Receive Date: 20080811
  Receipt Date: 20080729
  Transmission Date: 20090109
  Serious: Yes (Other)
  Sender: FDA-Public Use
  Company Number: PHHY2008DE15913

PATIENT
  Sex: Male

DRUGS (4)
  1. ZOMETA [Suspect]
     Indication: METASTASES TO BONE
     Dosage: UNK
     Route: 042
     Dates: start: 20030701, end: 20051101
  2. ZOMETA [Suspect]
     Indication: RENAL CELL CARCINOMA
  3. VIBLASTIN [Concomitant]
     Indication: RENAL CELL CARCINOMA
     Dosage: UNK
     Route: 042
     Dates: start: 20030701, end: 20031201
  4. GEMCITABINE [Concomitant]
     Indication: RENAL CELL CARCINOMA
     Dosage: UNK
     Route: 042
     Dates: start: 20040201, end: 20040801

REACTIONS (2)
  - OSTEONECROSIS [None]
  - SEQUESTRECTOMY [None]
